FAERS Safety Report 7671046-5 (Version None)
Quarter: 2011Q3

REPORT INFORMATION
  Report Type: 
  Country: None (occurrence: None)
  Receive Date: 20110803
  Receipt Date: 20110724
  Transmission Date: 20111222
  Serious: Yes (Other)
  Sender: FDA-Public Use
  Company Number: 2011P1007935

PATIENT
  Age: 31 Year
  Sex: Female
  Weight: 63.5036 kg

DRUGS (8)
  1. ALBUTEROL INHALER [Concomitant]
  2. LAMOTRIGINE [Suspect]
     Indication: BIPOLAR DISORDER
     Dosage: 100 MG, QD, PO
     Route: 048
     Dates: start: 20090101
  3. HYDROCODONE/TYLENOL [Concomitant]
  4. METHADONE HYDROCHLORIDE [Concomitant]
  5. VITAMIN D [Concomitant]
  6. SOMA [Concomitant]
  7. OXCARBAZEPINE [Concomitant]
  8. OXYCODONE HCL [Concomitant]

REACTIONS (5)
  - URTICARIA [None]
  - CLAVICLE FRACTURE [None]
  - OSTEOMYELITIS [None]
  - PRURITUS [None]
  - FRACTURE NONUNION [None]
